FAERS Safety Report 14137609 (Version 1)
Quarter: 2017Q4

REPORT INFORMATION
  Report Type: Report from Study
  Country: GB (occurrence: GB)
  Receive Date: 20171027
  Receipt Date: 20171027
  Transmission Date: 20180321
  Serious: Yes (Hospitalization, Other)
  Sender: FDA-Public Use
  Company Number: GB-TEVA-819202ISR

PATIENT
  Sex: Male
  Weight: 66.2 kg

DRUGS (8)
  1. FLUDARABINE [Suspect]
     Active Substance: FLUDARABINE PHOSPHATE
     Indication: ACUTE MYELOID LEUKAEMIA
     Dosage: 30 MG/M2 DAILY;
     Dates: start: 20160209
  2. AMSACRINE [Suspect]
     Active Substance: AMSACRINE
     Indication: ACUTE MYELOID LEUKAEMIA
     Dosage: 100 MG/M2 DAILY;
     Dates: start: 20160209
  3. AMSACRINE [Suspect]
     Active Substance: AMSACRINE
     Indication: MYELODYSPLASTIC SYNDROME
  4. FLUDARABINE [Suspect]
     Active Substance: FLUDARABINE PHOSPHATE
     Indication: MYELODYSPLASTIC SYNDROME
  5. BUSULFAN. [Suspect]
     Active Substance: BUSULFAN
     Indication: ACUTE MYELOID LEUKAEMIA
     Dosage: 3.2 MG/KG DAILY;
     Dates: start: 20160216
  6. CYTARABINE. [Suspect]
     Active Substance: CYTARABINE
     Indication: MYELODYSPLASTIC SYNDROME
  7. BUSULFAN. [Suspect]
     Active Substance: BUSULFAN
     Indication: MYELODYSPLASTIC SYNDROME
  8. CYTARABINE. [Suspect]
     Active Substance: CYTARABINE
     Indication: ACUTE MYELOID LEUKAEMIA
     Dosage: 2 G PER M2
     Dates: start: 20160209

REACTIONS (1)
  - Febrile neutropenia [Recovered/Resolved]

NARRATIVE: CASE EVENT DATE: 2016
